FAERS Safety Report 4394287-1 (Version None)
Quarter: 2004Q3

REPORT INFORMATION
  Report Type: 
  Country: None (occurrence: None)
  Receive Date: 20040707
  Receipt Date: 20040624
  Transmission Date: 20050211
  Serious: Yes (Hospitalization)
  Sender: FDA-Public Use
  Company Number: USA-2004-0015714

PATIENT
  Age: 52 Year
  Sex: Male

DRUGS (5)
  1. OXYCONTIN [Suspect]
     Indication: PAIN
     Dosage: 40 MG, Q8H
  2. AUGMENTIN [Suspect]
  3. ELAVIL [Concomitant]
  4. ROXICODONE [Concomitant]
  5. XANAX [Concomitant]

REACTIONS (10)
  - AGITATION [None]
  - AMNESIA [None]
  - BLISTER [None]
  - CONSTIPATION [None]
  - DELUSION [None]
  - DISORIENTATION [None]
  - DRUG INTERACTION [None]
  - IMPAIRED DRIVING ABILITY [None]
  - IMPAIRED HEALING [None]
  - WOUND INFECTION STAPHYLOCOCCAL [None]
